FAERS Safety Report 7969740-1 (Version None)
Quarter: 2011Q4

REPORT INFORMATION
  Report Type: 
  Country: None (occurrence: None)
  Receive Date: 20111212
  Receipt Date: 20111130
  Transmission Date: 20120403
  Serious: Yes (Other)
  Sender: FDA-Public Use
  Company Number: FR-VERTEX PHARMACEUTICALS INC.-AE-2011-002418

PATIENT
  Sex: Male
  Weight: 70 kg

DRUGS (7)
  1. COPEGUS [Concomitant]
     Route: 048
     Dates: end: 20111118
  2. PEGASYS [Concomitant]
     Indication: HEPATITIS C
  3. VX-950 [Suspect]
     Indication: HEPATITIS C
     Dates: start: 20110207, end: 20110509
  4. PRAZEPAM [Concomitant]
     Indication: ANXIETY
  5. NEORECORMON [Concomitant]
     Dates: end: 20111118
  6. COPEGUS [Concomitant]
     Indication: HEPATITIS C
     Route: 048
  7. PEGASYS [Concomitant]
     Dates: end: 20111118

REACTIONS (2)
  - RASH [None]
  - AGGRESSION [None]
